FAERS Safety Report 11743233 (Version 2)
Quarter: 2015Q4

REPORT INFORMATION
  Report Type: Spontaneous
  Country: FR (occurrence: FR)
  Receive Date: 20151116
  Receipt Date: 20151119
  Transmission Date: 20160304
  Serious: Yes (Hospitalization, Other)
  Sender: FDA-Public Use
  Company Number: FR-BAXTER-2015BAX060319

PATIENT
  Age: 56 Year
  Sex: Male

DRUGS (6)
  1. UROMITEXAN 5 G/50 ML, SOLUTION INJECTABLE POUR PERFUSION EN FLACON [Suspect]
     Active Substance: MESNA
     Indication: RETROPERITONEAL CANCER
  2. IFOSFAMIDE EG [Suspect]
     Active Substance: IFOSFAMIDE
     Indication: RETROPERITONEAL CANCER
     Dosage: 2ND CYCLE
     Route: 042
     Dates: start: 20150520, end: 20150602
  3. UROMITEXAN 5 G/50 ML, SOLUTION INJECTABLE POUR PERFUSION EN FLACON [Suspect]
     Active Substance: MESNA
     Indication: LIPOSARCOMA
     Route: 065
     Dates: start: 20150520, end: 20150602
  4. IFOSFAMIDE EG [Suspect]
     Active Substance: IFOSFAMIDE
     Indication: LIPOSARCOMA
     Dosage: 1ST CYCLE
     Route: 065
     Dates: start: 20150420, end: 20150503
  5. ONDANSETRON ACCORD [Suspect]
     Active Substance: ONDANSETRON
     Indication: LIPOSARCOMA
     Route: 042
     Dates: start: 20150520, end: 20150602
  6. ONDANSETRON ACCORD [Suspect]
     Active Substance: ONDANSETRON
     Indication: RETROPERITONEAL CANCER

REACTIONS (12)
  - Hypokalaemia [Unknown]
  - Leukopenia [Unknown]
  - Alopecia [Unknown]
  - Asthenia [Unknown]
  - Decreased appetite [Unknown]
  - Haematuria [Unknown]
  - Encephalopathy [Recovered/Resolved]
  - Anaemia [Unknown]
  - General physical health deterioration [Unknown]
  - Iron deficiency [Unknown]
  - Neutropenia [Unknown]
  - Weight decreased [Unknown]

NARRATIVE: CASE EVENT DATE: 20150603
